FAERS Safety Report 19928335 (Version 1)
Quarter: 2021Q4

REPORT INFORMATION
  Report Type: Spontaneous
  Country: US (occurrence: US)
  Receive Date: 20211006
  Receipt Date: 20211006
  Transmission Date: 20220303
  Serious: No
  Sender: FDA-Public Use
  Company Number: None

PATIENT
  Age: 41 Year
  Sex: Female
  Weight: 107.9 kg

DRUGS (4)
  1. ETOMIDATE [Suspect]
     Active Substance: ETOMIDATE
     Indication: Sedative therapy
     Dosage: ?          OTHER FREQUENCY:TWICE;
     Route: 042
     Dates: start: 20210804, end: 20210804
  2. ketorolac 30mg IV [Concomitant]
     Dates: start: 20210804, end: 20210804
  3. ONDANSETRON [Concomitant]
     Active Substance: ONDANSETRON
     Dates: start: 20210804, end: 20210804
  4. succinylcholine 60mg IV [Concomitant]
     Dates: start: 20210804, end: 20210804

REACTIONS (1)
  - Tachycardia [None]

NARRATIVE: CASE EVENT DATE: 20210804
